FAERS Safety Report 14441661 (Version 2)
Quarter: 2018Q1

REPORT INFORMATION
  Report Type: Spontaneous
  Country: FI (occurrence: FI)
  Receive Date: 20180125
  Receipt Date: 20180215
  Transmission Date: 20180509
  Serious: Yes (Hospitalization)
  Sender: FDA-Public Use
  Company Number: FI-TAKEDA-2018TUS001729

PATIENT
  Age: 25 Year
  Sex: Female

DRUGS (4)
  1. ACLOVIR [Concomitant]
     Dosage: UNK
  2. MEDROL [Concomitant]
     Active Substance: METHYLPREDNISOLONE
     Dosage: 4 MG, UNK
  3. MERCILON [Concomitant]
     Active Substance: DESOGESTREL\ETHINYL ESTRADIOL
     Dosage: UNK
  4. ENTYVIO [Suspect]
     Active Substance: VEDOLIZUMAB
     Indication: CROHN^S DISEASE
     Dosage: 300 MG, UNK
     Route: 042
     Dates: start: 2017

REACTIONS (1)
  - Herpes simplex [Recovered/Resolved]

NARRATIVE: CASE EVENT DATE: 2017
